FAERS Safety Report 8738498 (Version 2)
Quarter: 2012Q4

REPORT INFORMATION
  Report Type: 
  Country: BR (occurrence: BR)
  Receive Date: 20120823
  Receipt Date: 20121001
  Transmission Date: 20130627
  Serious: Yes (Disabling, Other)
  Sender: FDA-Public Use
  Company Number: BR-SANOFI-AVENTIS-2012SA058894

PATIENT
  Age: 57 Year
  Sex: Female
  Weight: 65 kg

DRUGS (8)
  1. LANTUS [Suspect]
     Indication: DIABETES
     Route: 058
     Dates: start: 2010, end: 201205
  2. LANTUS SOLOSTAR [Suspect]
     Indication: DIABETES
     Route: 058
     Dates: start: 2012
  3. SOLOSTAR [Suspect]
     Indication: DEVICE THERAPY
     Dates: start: 2012
  4. BROMAZEPAM [Concomitant]
     Indication: SEDATION
     Route: 048
     Dates: start: 201111
  5. DAONIL [Concomitant]
     Indication: DIABETES
     Route: 048
  6. NOVOLIN R [Concomitant]
     Indication: DIABETES
     Dosage: according to glycemia
  7. CAPTOPRIL [Concomitant]
     Indication: BLOOD PRESSURE
     Route: 048
     Dates: start: 2008
  8. METFORMIN [Concomitant]
     Indication: DIABETES
     Route: 048
     Dates: start: 2010

REACTIONS (9)
  - Angiopathy [Recovered/Resolved with Sequelae]
  - Pain [Recovered/Resolved with Sequelae]
  - Thrombosis [Recovered/Resolved with Sequelae]
  - Urinary retention [Not Recovered/Not Resolved]
  - Hyperglycaemia [Not Recovered/Not Resolved]
  - Headache [Not Recovered/Not Resolved]
  - Nausea [Not Recovered/Not Resolved]
  - Pain [Not Recovered/Not Resolved]
  - Eye swelling [Not Recovered/Not Resolved]
